FAERS Safety Report 4359491-7 (Version None)
Quarter: 2004Q2

REPORT INFORMATION
  Report Type: 
  Country: None (occurrence: None)
  Receive Date: 20040512
  Receipt Date: 20040426
  Transmission Date: 20050107
  Serious: Yes (Other)
  Sender: FDA-Public Use
  Company Number: USA031151682

PATIENT
  Age: 73 Year
  Sex: Female
  Weight: 63 kg

DRUGS (6)
  1. EVISTA [Suspect]
     Indication: OSTEOPOROSIS
     Dosage: 60 MG DAY
     Dates: start: 20000901
  2. FOSAMAX [Concomitant]
  3. LOPRESSOR [Concomitant]
  4. MAXZIDE [Concomitant]
  5. PREDNISONE [Concomitant]
  6. CALTRATE (CALCIUM CARBONATE) [Concomitant]

REACTIONS (4)
  - GASTRIC DISORDER [None]
  - HOT FLUSH [None]
  - MUSCLE CRAMP [None]
  - SPINAL FRACTURE [None]
